FAERS Safety Report 10283103 (Version 2)
Quarter: 2014Q3

REPORT INFORMATION
  Report Type: Spontaneous
  Country: US (occurrence: US)
  Receive Date: 20140708
  Receipt Date: 20140721
  Transmission Date: 20150326
  Serious: No
  Sender: FDA-Public Use
  Company Number: US-009507513-1407USA003418

PATIENT
  Age: 74 Year
  Sex: Female

DRUGS (1)
  1. NASONEX [Suspect]
     Active Substance: MOMETASONE FUROATE
     Indication: VIRAL INFECTION
     Dosage: TAKEN TWICE DAILY IN EACH NOSTRIL
     Route: 045
     Dates: end: 201404

REACTIONS (2)
  - Drug administration error [Unknown]
  - Nasal dryness [Not Recovered/Not Resolved]

NARRATIVE: CASE EVENT DATE: 201403
